FAERS Safety Report 23037864 (Version 1)
Quarter: 2023Q4

REPORT INFORMATION
  Report Type: Spontaneous
  Country: US (occurrence: US)
  Receive Date: 20231006
  Receipt Date: 20231006
  Transmission Date: 20240109
  Serious: No
  Sender: FDA-Public Use
  Company Number: US-INDIVIOR US-INDV-136212-2022

PATIENT
  Age: 24 Year
  Sex: Male

DRUGS (5)
  1. SUBLOCADE [Suspect]
     Active Substance: BUPRENORPHINE
     Indication: Drug dependence
     Dosage: 300 MILLIGRAM, QMO (TOOK TWO DOSES)
     Route: 058
     Dates: start: 20220111
  2. SUBLOCADE [Suspect]
     Active Substance: BUPRENORPHINE
     Dosage: 150 MILLIGRAM, QMO
     Route: 065
     Dates: start: 202203
  3. SUBOXONE [Suspect]
     Active Substance: BUPRENORPHINE HYDROCHLORIDE\NALOXONE HYDROCHLORIDE
     Indication: Drug dependence
     Dosage: 8 MILLIGRAMS, BID
     Route: 060
     Dates: start: 20211007
  4. SUBOXONE [Suspect]
     Active Substance: BUPRENORPHINE HYDROCHLORIDE\NALOXONE HYDROCHLORIDE
     Indication: Drug withdrawal syndrome
     Dosage: 8 MILLIGRAM, BID
     Route: 060
     Dates: start: 20220914, end: 2022
  5. IMITREX [Concomitant]
     Active Substance: SUMATRIPTAN SUCCINATE
     Indication: Migraine
     Dosage: UNK
     Route: 065

REACTIONS (3)
  - Off label use [Recovered/Resolved]
  - Drug withdrawal syndrome [Recovered/Resolved]
  - Inappropriate schedule of product administration [Recovered/Resolved]

NARRATIVE: CASE EVENT DATE: 20211007
